FAERS Safety Report 19776644 (Version 1)
Quarter: 2021Q3

REPORT INFORMATION
  Report Type: Spontaneous
  Country: US (occurrence: US)
  Receive Date: 20210901
  Receipt Date: 20210901
  Transmission Date: 20211014
  Serious: No
  Sender: FDA-Public Use
  Company Number: NVSC2021US193582

PATIENT
  Sex: Female

DRUGS (2)
  1. RYDAPT [Suspect]
     Active Substance: MIDOSTAURIN
     Indication: PRODUCT USED FOR UNKNOWN INDICATION
     Dosage: UNK
     Route: 065
     Dates: start: 202107
  2. VENCLEXTA [Suspect]
     Active Substance: VENETOCLAX
     Indication: ACUTE MYELOID LEUKAEMIA
     Dosage: 100 MG
     Route: 048
     Dates: start: 20210405

REACTIONS (5)
  - Pollakiuria [Not Recovered/Not Resolved]
  - Blood count abnormal [Not Recovered/Not Resolved]
  - Bone marrow disorder [Not Recovered/Not Resolved]
  - Illness [Not Recovered/Not Resolved]
  - Alopecia [Not Recovered/Not Resolved]
